FAERS Safety Report 9449539 (Version 1)
Quarter: 2013Q3

REPORT INFORMATION
  Report Type: Spontaneous
  Country: US (occurrence: US)
  Receive Date: 20130809
  Receipt Date: 20130809
  Transmission Date: 20140515
  Serious: Yes (Hospitalization)
  Sender: FDA-Public Use
  Company Number: US-AMGEN-USASP2013054464

PATIENT
  Age: 75 Year
  Sex: Male

DRUGS (15)
  1. SENSIPAR [Suspect]
     Indication: HYPERPARATHYROIDISM SECONDARY
     Route: 065
  2. ALLOPURINOL [Concomitant]
     Dosage: 100 MG, UNK
  3. SYNTHROID [Concomitant]
  4. VITAMIN B [Concomitant]
  5. RESTORIL                           /00054301/ [Concomitant]
     Dosage: 30 MG, UNK
  6. LIPITOR [Concomitant]
  7. PROTONIX [Concomitant]
  8. ESCITALOPRAM [Concomitant]
     Dosage: 10 MG, UNK
  9. ENALAPRIL [Concomitant]
     Dosage: 10 MG, UNK
  10. TOPROL [Concomitant]
     Dosage: 25 MG, UNK
  11. CELEBREX [Concomitant]
     Dosage: 200 MG, UNK
  12. RENVELA [Concomitant]
     Dosage: 2400 MG, UNK
  13. PLAVIX [Concomitant]
     Dosage: 75 MG, UNK
  14. MINOCYCLINE [Concomitant]
     Dosage: 50 MG, UNK
  15. ASPIRIN [Concomitant]
     Dosage: 81 MG, UNK

REACTIONS (7)
  - Hospitalisation [Unknown]
  - Insomnia [Unknown]
  - Balance disorder [Unknown]
  - Fall [Unknown]
  - Therapeutic product ineffective [Unknown]
  - Skin irritation [Unknown]
  - Nausea [Unknown]
